FAERS Safety Report 10412570 (Version 1)
Quarter: 2014Q3

REPORT INFORMATION
  Report Type: Spontaneous
  Country: US (occurrence: None)
  Receive Date: 20140826
  Receipt Date: 20140826
  Transmission Date: 20150326
  Serious: Yes (Disabling)
  Sender: FDA-Public Use
  Company Number: None

PATIENT
  Age: 77 Year
  Sex: Female
  Weight: 90.72 kg

DRUGS (1)
  1. NEXIUM [Suspect]
     Active Substance: ESOMEPRAZOLE MAGNESIUM
     Indication: BARRETT^S OESOPHAGUS
     Dosage: 1 PILL ONCE DAILY

REACTIONS (6)
  - Abdominal pain upper [None]
  - Impaired driving ability [None]
  - Fatigue [None]
  - Dizziness [None]
  - Headache [None]
  - Dyspnoea [None]
